FAERS Safety Report 9009900 (Version 2)
Quarter: 2013Q1

REPORT INFORMATION
  Report Type: Spontaneous
  Country: GB (occurrence: GB)
  Receive Date: 20130110
  Receipt Date: 20130212
  Transmission Date: 20140127
  Serious: Yes (Other)
  Sender: FDA-Public Use
  Company Number: GB-JNJFOC-20130103196

PATIENT
  Age: 7 Year
  Sex: Male

DRUGS (2)
  1. CALPOL [Suspect]
     Route: 065
  2. CALPOL [Suspect]
     Indication: PRODUCT USED FOR UNKNOWN INDICATION
     Route: 065

REACTIONS (1)
  - Coeliac disease [Unknown]
